FAERS Safety Report 20602104 (Version 6)
Quarter: 2022Q4

REPORT INFORMATION
  Report Type: Report from Study
  Country: US (occurrence: US)
  Receive Date: 20220316
  Receipt Date: 20221010
  Transmission Date: 20230113
  Serious: No
  Sender: FDA-Public Use
  Company Number: US-NOVARTISTESTPH-NVSC2022US060049

PATIENT
  Sex: Male

DRUGS (2)
  1. COSENTYX [Suspect]
     Active Substance: SECUKINUMAB
     Indication: Ankylosing spondylitis
     Dosage: 150 MG, QW (WEEK 0, 1, 2, 3, 4 THEN EVERY 4 WEEKS)
     Route: 058
  2. COSENTYX [Suspect]
     Active Substance: SECUKINUMAB
     Dosage: 150 MG
     Route: 058

REACTIONS (7)
  - Visual impairment [Unknown]
  - Dizziness [Unknown]
  - Ophthalmic migraine [Unknown]
  - Back pain [Unknown]
  - Pruritus [Unknown]
  - Symptom recurrence [Unknown]
  - Drug ineffective [Unknown]
